FAERS Safety Report 8599010-2 (Version None)
Quarter: 2012Q3

REPORT INFORMATION
  Report Type: 
  Country: None (occurrence: None)
  Receive Date: 20120816
  Receipt Date: 20120807
  Transmission Date: 20120928
  Serious: Yes (Other)
  Sender: FDA-Public Use
  Company Number: PHHY2012JP067152

PATIENT
  Age: 86 Year
  Sex: Male
  Weight: 50 kg

DRUGS (2)
  1. PREDNISOLONE [Suspect]
     Indication: APLASIA PURE RED CELL
     Dosage: 1 MG/KG
  2. PREDNISOLONE [Suspect]
     Dosage: 0.25 MG/KG

REACTIONS (2)
  - CARDIAC FAILURE [None]
  - PLEURAL EFFUSION [None]
